FAERS Safety Report 9263491 (Version 4)
Quarter: 2014Q2

REPORT INFORMATION
  Report Type: Report from Study
  Country: FR (occurrence: FR)
  Receive Date: 20130430
  Receipt Date: 20140617
  Transmission Date: 20141212
  Serious: Yes (Other)
  Sender: FDA-Public Use
  Company Number: FR-CELGENEUS-056-21880-13043750

PATIENT
  Age: 71 Year
  Sex: Male
  Weight: 71 kg

DRUGS (38)
  1. REVLIMID [Suspect]
     Indication: MYELODYSPLASTIC SYNDROME
     Dosage: 10 MILLIGRAM
     Route: 048
     Dates: start: 20111114, end: 20120531
  2. REVLIMID [Suspect]
     Dosage: 5 MILLIGRAM
     Route: 048
     Dates: start: 20120627, end: 20130130
  3. NEORECORMON [Suspect]
     Indication: MYELODYSPLASTIC SYNDROME
     Route: 065
     Dates: start: 20111116, end: 201301
  4. CORTANCYL [Concomitant]
     Indication: POLYMYALGIA RHEUMATICA
     Dosage: 17.5 MILLIGRAM
     Route: 048
     Dates: start: 20130118
  5. DESFERAL [Concomitant]
     Indication: IRON OVERLOAD
     Dosage: 25 MILLIGRAM/KILOGRAM
     Route: 058
     Dates: start: 20130109, end: 20131206
  6. METHOTREXATE [Concomitant]
     Indication: POLYMYALGIA RHEUMATICA
     Dosage: 10 MILLIGRAM
     Route: 058
     Dates: start: 20121009, end: 20130104
  7. RED BLOOD CELLS [Concomitant]
     Indication: PRODUCT USED FOR UNKNOWN INDICATION
     Route: 065
     Dates: start: 20131210, end: 20131211
  8. RED BLOOD CELLS [Concomitant]
     Route: 065
     Dates: start: 20131204, end: 20131205
  9. RED BLOOD CELLS [Concomitant]
     Route: 065
     Dates: start: 20131130, end: 20131130
  10. RED BLOOD CELLS [Concomitant]
     Route: 065
     Dates: start: 20131115, end: 20131115
  11. RED BLOOD CELLS [Concomitant]
     Route: 065
     Dates: start: 20131031, end: 20131031
  12. RED BLOOD CELLS [Concomitant]
     Route: 065
     Dates: start: 20131024, end: 20131024
  13. RED BLOOD CELLS [Concomitant]
     Route: 065
     Dates: start: 20131017, end: 20131017
  14. RED BLOOD CELLS [Concomitant]
     Route: 065
     Dates: start: 20131003, end: 20131003
  15. RED BLOOD CELLS [Concomitant]
     Route: 065
     Dates: start: 20130919, end: 20130919
  16. RED BLOOD CELLS [Concomitant]
     Route: 065
     Dates: start: 20130905, end: 20130905
  17. RED BLOOD CELLS [Concomitant]
     Route: 065
     Dates: start: 20130814, end: 20130814
  18. RED BLOOD CELLS [Concomitant]
     Route: 065
     Dates: start: 20130725, end: 20130725
  19. RED BLOOD CELLS [Concomitant]
     Route: 065
     Dates: start: 20130704, end: 20130704
  20. RED BLOOD CELLS [Concomitant]
     Route: 065
     Dates: start: 20130611, end: 20130612
  21. RED BLOOD CELLS [Concomitant]
     Route: 065
     Dates: start: 20130520, end: 20130520
  22. RED BLOOD CELLS [Concomitant]
     Route: 065
     Dates: start: 20130514, end: 20130515
  23. RED BLOOD CELLS [Concomitant]
     Route: 065
     Dates: start: 20130430, end: 20130430
  24. RED BLOOD CELLS [Concomitant]
     Route: 065
     Dates: start: 20130418, end: 20130418
  25. RED BLOOD CELLS [Concomitant]
     Route: 065
     Dates: start: 20130403, end: 20130405
  26. RED BLOOD CELLS [Concomitant]
     Route: 065
     Dates: start: 20131201, end: 20131201
  27. RED BLOOD CELLS [Concomitant]
     Route: 065
     Dates: start: 20130327, end: 20130327
  28. RED BLOOD CELLS [Concomitant]
     Route: 065
     Dates: start: 20130305, end: 20130307
  29. RED BLOOD CELLS [Concomitant]
     Route: 065
     Dates: start: 20130220, end: 20130220
  30. RED BLOOD CELLS [Concomitant]
     Route: 065
     Dates: start: 20130130, end: 20130130
  31. RED BLOOD CELLS [Concomitant]
     Route: 065
     Dates: start: 20111213, end: 20111213
  32. RED BLOOD CELLS [Concomitant]
     Route: 065
     Dates: start: 20111129, end: 20111129
  33. RED BLOOD CELLS [Concomitant]
     Route: 065
     Dates: start: 20111114, end: 20111114
  34. RED BLOOD CELLS [Concomitant]
     Route: 065
     Dates: start: 20111021, end: 20111021
  35. RED BLOOD CELLS [Concomitant]
     Route: 065
     Dates: start: 20110930, end: 20110930
  36. RED BLOOD CELLS [Concomitant]
     Route: 065
     Dates: start: 20110907, end: 20110907
  37. COLCHIMAX [Concomitant]
     Indication: PRODUCT USED FOR UNKNOWN INDICATION
     Dosage: 1 TABLET
     Route: 048
  38. CACIT D3 [Concomitant]
     Indication: PRODUCT USED FOR UNKNOWN INDICATION
     Dosage: 1
     Route: 065

REACTIONS (1)
  - Bladder transitional cell carcinoma [Not Recovered/Not Resolved]
